FAERS Safety Report 16054079 (Version 1)
Quarter: 2019Q1

REPORT INFORMATION
  Report Type: Spontaneous
  Country: GB (occurrence: GB)
  Receive Date: 20190308
  Receipt Date: 20190308
  Transmission Date: 20190418
  Serious: Yes (Other)
  Sender: FDA-Public Use
  Company Number: PHHY2019GB049133

PATIENT
  Age: 62 Year
  Sex: Male

DRUGS (1)
  1. ATORVASTATIN CALCIUM. [Suspect]
     Active Substance: ATORVASTATIN CALCIUM
     Indication: CARDIAC AMYLOIDOSIS
     Dosage: 20 MG, QD
     Route: 065

REACTIONS (8)
  - Product use in unapproved indication [Unknown]
  - Depression [Unknown]
  - Oedema [Unknown]
  - Weight decreased [Unknown]
  - Hypertension [Unknown]
  - Cardiac amyloidosis [Unknown]
  - Dyspnoea [Unknown]
  - Fatigue [Unknown]
